FAERS Safety Report 6599173-4 (Version None)
Quarter: 2010Q1

REPORT INFORMATION
  Report Type: 
  Country: None (occurrence: None)
  Receive Date: 20100212
  Receipt Date: 20090914
  Transmission Date: 20100710
  Serious: No
  Sender: FDA-Public Use
  Company Number: 2009-00613

PATIENT
  Age: 41 Year
  Sex: Male
  Weight: 55.7924 kg

DRUGS (7)
  1. ZICAM ALLERGY RELIEF  GEL SWABS [Suspect]
     Indication: NASOPHARYNGITIS
     Dosage: 2-3X/DAY - 2 YEARS; 2 YEARS AGO-LAS WEEK
  2. ZICAM COLD REMDEY  GEL SWABS [Suspect]
     Indication: NASOPHARYNGITIS
     Dosage: 2 YEARS , PERIODICALLY
  3. ZICAM COLD REMDEY NASAL GEL [Suspect]
     Indication: NASOPHARYNGITIS
     Dosage: 2 YEARS, 2 YEARS; 2 YEARS AGO - LAST WEEK
  4. LOTREL [Concomitant]
  5. SPIRIVA [Concomitant]
  6. MULTI-VITAMIN [Concomitant]
  7. ASPIRIN [Concomitant]

REACTIONS (1)
  - ANOSMIA [None]
